FAERS Safety Report 18639116 (Version 1)
Quarter: 2020Q4

REPORT INFORMATION
  Report Type: Report from Study
  Country: BR (occurrence: BR)
  Receive Date: 20201219
  Receipt Date: 20201219
  Transmission Date: 20210114
  Serious: Yes (Disabling)
  Sender: FDA-Public Use
  Company Number: NVSC2020BR331261

PATIENT
  Age: 70 Year
  Sex: Female

DRUGS (1)
  1. DIOVAN [Suspect]
     Active Substance: VALSARTAN
     Indication: BLOOD PRESSURE INCREASED
     Dosage: 1 DF, QD STARTED ABOUT 2 YEARS AGO, ONCE A DAY (IN THE MORNING)
     Route: 065

REACTIONS (3)
  - Deafness [Unknown]
  - Product use in unapproved indication [Unknown]
  - Hypoacusis [Unknown]
